FAERS Safety Report 16975270 (Version 1)
Quarter: 2019Q4

REPORT INFORMATION
  Report Type: Spontaneous
  Country: JP (occurrence: JP)
  Receive Date: 20191030
  Receipt Date: 20191030
  Transmission Date: 20200122
  Serious: Yes (Other)
  Sender: FDA-Public Use
  Company Number: JP-PFIZER INC-2019461571

PATIENT
  Sex: Female

DRUGS (5)
  1. LYRICA [Suspect]
     Active Substance: PREGABALIN
     Indication: CHRONIC FATIGUE SYNDROME
     Dosage: 25 MG, 2X/DAY
     Route: 048
  2. LYRICA [Suspect]
     Active Substance: PREGABALIN
     Dosage: 25 MG, 2X/DAY
     Route: 048
  3. LYRICA [Suspect]
     Active Substance: PREGABALIN
     Indication: FIBROMYALGIA
     Dosage: 75 MG, 2X/DAY, MANE AND NOCTE
     Route: 048
  4. LYRICA [Suspect]
     Active Substance: PREGABALIN
     Dosage: UNK, 2X/DAY, 1 TABLET MANE AND 2 TABLETS NOCTE
     Route: 048
  5. LYRICA [Suspect]
     Active Substance: PREGABALIN
     Dosage: 1 DF, 1X/DAY, NOCTE
     Route: 048

REACTIONS (13)
  - Insomnia [Unknown]
  - Chest discomfort [Unknown]
  - Nightmare [Unknown]
  - Drug withdrawal syndrome [Unknown]
  - Middle insomnia [Unknown]
  - Feeling cold [Unknown]
  - Night sweats [Unknown]
  - Feeling abnormal [Unknown]
  - Hypertension [Unknown]
  - Restless legs syndrome [Unknown]
  - Dementia [Unknown]
  - Somnolence [Unknown]
  - Feeling of body temperature change [Unknown]
